FAERS Safety Report 8158964-9 (Version None)
Quarter: 2012Q1

REPORT INFORMATION
  Report Type: 
  Country: None (occurrence: None)
  Receive Date: 20120223
  Receipt Date: 20120220
  Transmission Date: 20120608
  Serious: No
  Sender: FDA-Public Use
  Company Number: US-PFIZER INC-2012045128

PATIENT
  Sex: Male
  Weight: 11.791 kg

DRUGS (3)
  1. CHILDREN'S ADVIL [Suspect]
     Indication: PYREXIA
     Dosage: 1 TEASPOONFUL ONCE DAILY
     Route: 048
     Dates: start: 20120219, end: 20120220
  2. CHILDREN'S ADVIL [Suspect]
     Indication: CHILLS
  3. CHILDREN'S ADVIL [Suspect]
     Indication: NASOPHARYNGITIS

REACTIONS (1)
  - MUSCLE TWITCHING [None]
